FAERS Safety Report 8612348-5 (Version None)
Quarter: 2012Q3

REPORT INFORMATION
  Report Type: 
  Country: None (occurrence: None)
  Receive Date: 20120822
  Receipt Date: 20120815
  Transmission Date: 20120928
  Serious: Yes (Other)
  Sender: FDA-Public Use
  Company Number: US-JNJFOC-20120807738

PATIENT
  Sex: Male
  Weight: 106.6 kg

DRUGS (3)
  1. XARELTO [Suspect]
     Indication: PROPHYLAXIS
     Route: 048
     Dates: start: 20120601, end: 20120809
  2. XARELTO [Suspect]
     Indication: ATRIAL FIBRILLATION
     Route: 048
     Dates: start: 20120601, end: 20120809
  3. MULTAQ [Concomitant]
     Indication: ARRHYTHMIA PROPHYLAXIS
     Route: 048

REACTIONS (3)
  - BLOOD URINE PRESENT [None]
  - HEADACHE [None]
  - WOUND HAEMORRHAGE [None]
